FAERS Safety Report 7524597-8 (Version None)
Quarter: 2011Q2

REPORT INFORMATION
  Report Type: 
  Country: None (occurrence: None)
  Receive Date: 20110606
  Receipt Date: 20110523
  Transmission Date: 20111010
  Serious: Yes (Hospitalization, Other)
  Sender: FDA-Public Use
  Company Number: IE-ELI_LILLY_AND_COMPANY-IE201102002358

PATIENT
  Sex: Female

DRUGS (8)
  1. LEXAPRO [Concomitant]
     Indication: DEPRESSION
     Dosage: UNK
     Route: 048
  2. OXYCODONE HCL [Concomitant]
  3. GALFER [Concomitant]
  4. ACETAMINOPHEN [Concomitant]
     Indication: PAIN
     Dosage: UNK
     Route: 048
  5. AMLODIPINE [Concomitant]
     Indication: HYPERTENSION
     Dosage: UNK
     Route: 048
  6. OXYCONTIN [Concomitant]
     Indication: PAIN
     Dosage: UNK
     Route: 048
  7. FORTEO [Suspect]
     Indication: OSTEOPOROSIS
     Dosage: 20 UG, UNK
     Dates: start: 20110127
  8. SERETIDE [Concomitant]

REACTIONS (6)
  - SKIN ULCER [None]
  - MALAISE [None]
  - DEHYDRATION [None]
  - KIDNEY INFECTION [None]
  - TREMOR [None]
  - SENSATION OF HEAVINESS [None]
